FAERS Safety Report 6355127-4 (Version None)
Quarter: 2009Q3

REPORT INFORMATION
  Report Type: 
  Country: None (occurrence: None)
  Receive Date: 20090914
  Receipt Date: 20090909
  Transmission Date: 20100115
  Serious: Yes (Life-Threatening)
  Sender: FDA-Public Use
  Company Number: GB-ASTRAZENECA-2009SE12028

PATIENT
  Age: 37 Year
  Sex: Female

DRUGS (2)
  1. BUPIVACAINE [Suspect]
     Route: 037
  2. FENTANYL [Suspect]
     Route: 037

REACTIONS (2)
  - COLONIC PSEUDO-OBSTRUCTION [None]
  - INTESTINAL OBSTRUCTION [None]
